FAERS Safety Report 5894538-8 (Version None)
Quarter: 2008Q3

REPORT INFORMATION
  Report Type: 
  Country: None (occurrence: None)
  Receive Date: 20080924
  Receipt Date: 20080911
  Transmission Date: 20090109
  Serious: Yes (Life-Threatening)
  Sender: FDA-Public Use
  Company Number: JP-JNJFOC-20080806420

PATIENT
  Sex: Male

DRUGS (2)
  1. FINIBAX [Suspect]
     Indication: PANCREATITIS
     Route: 041
  2. FUTHAN [Concomitant]
     Indication: PANCREATITIS
     Route: 041

REACTIONS (1)
  - SHOCK [None]
